FAERS Safety Report 7041729-9 (Version None)
Quarter: 2010Q4

REPORT INFORMATION
  Report Type: 
  Country: None (occurrence: None)
  Receive Date: 20101013
  Receipt Date: 20100223
  Transmission Date: 20110411
  Serious: No
  Sender: FDA-Public Use
  Company Number: US-ASTRAZENECA-2010SE07941

PATIENT
  Age: 64 Year
  Sex: Female
  Weight: 61.2 kg

DRUGS (5)
  1. SYMBICORT [Suspect]
     Indication: ASTHMA
     Dosage: 320/9 UG TWICE A DAY
     Route: 055
     Dates: start: 20070601
  2. VENTOLIN [Concomitant]
     Indication: ASTHMA
  3. ASTELYN [Concomitant]
  4. NASACORT [Concomitant]
  5. NEXIUM [Concomitant]

REACTIONS (3)
  - EYE PRURITUS [None]
  - INTENTIONAL DRUG MISUSE [None]
  - LACRIMATION INCREASED [None]
